FAERS Safety Report 14531963 (Version 1)
Quarter: 2018Q1

REPORT INFORMATION
  Report Type: Spontaneous
  Country: US (occurrence: US)
  Receive Date: 20180214
  Receipt Date: 20180214
  Transmission Date: 20180509
  Serious: No
  Sender: FDA-Public Use
  Company Number: PHEH2018US004563

PATIENT
  Sex: Female

DRUGS (4)
  1. NYSTATIN. [Suspect]
     Active Substance: NYSTATIN
     Indication: SKIN CANDIDA
     Route: 061
  2. TRIAMCINOLONE ACETONIDE. [Suspect]
     Active Substance: TRIAMCINOLONE ACETONIDE
     Indication: SKIN CANDIDA
     Route: 065
  3. NYSTATIN+TRIAMCINOLONE [Suspect]
     Active Substance: NYSTATIN\TRIAMCINOLONE ACETONIDE
     Indication: SKIN CANDIDA
     Route: 065
  4. CICLOPIROX. [Suspect]
     Active Substance: CICLOPIROX
     Indication: SKIN CANDIDA
     Route: 065

REACTIONS (3)
  - Feeling abnormal [Unknown]
  - Inflammation [Not Recovered/Not Resolved]
  - Skin candida [Not Recovered/Not Resolved]
